FAERS Safety Report 9702053 (Version 1)
Quarter: 2013Q4

REPORT INFORMATION
  Report Type: Spontaneous
  Country: US (occurrence: US)
  Receive Date: 20131121
  Receipt Date: 20131121
  Transmission Date: 20140711
  Serious: Yes (Other)
  Sender: FDA-Public Use
  Company Number: PHEH2013US024194

PATIENT
  Sex: Male

DRUGS (1)
  1. RITALINA [Suspect]
     Dosage: UNK UKN, UNK

REACTIONS (2)
  - Psoriasis [Unknown]
  - Skin disorder [Unknown]
